FAERS Safety Report 4372237-1 (Version None)
Quarter: 2004Q2

REPORT INFORMATION
  Report Type: 
  Country: None (occurrence: None)
  Receive Date: 20040603
  Receipt Date: 20040603
  Transmission Date: 20050107
  Serious: Yes (Life-Threatening)
  Sender: FDA-Public Use
  Company Number: None

PATIENT
  Age: 52 Year
  Sex: Female
  Weight: 70.5 kg

DRUGS (4)
  1. MIDAZOLAM 2MG/2ML ABBOTT [Suspect]
     Indication: SEDATION
     Dosage: 2 MG X 3 DOSES INTRAVENOUS
     Route: 042
     Dates: start: 20040212, end: 20040212
  2. VANCOMYCIN [Suspect]
     Indication: CARDIAC OPERATION
     Dosage: 1 GM ONCE INTRAVENOUS
     Route: 042
     Dates: start: 20040212, end: 20040213
  3. VANCOMYCIN [Suspect]
     Indication: PREOPERATIVE CARE
     Dosage: 1 GM ONCE INTRAVENOUS
     Route: 042
     Dates: start: 20040212, end: 20040213
  4. VANCOMYCIN [Suspect]
     Indication: PROPHYLAXIS
     Dosage: 1 GM ONCE INTRAVENOUS
     Route: 042
     Dates: start: 20040212, end: 20040213

REACTIONS (2)
  - ANAPHYLACTIC REACTION [None]
  - COMA [None]
